FAERS Safety Report 19195596 (Version 2)
Quarter: 2021Q2

REPORT INFORMATION
  Report Type: Spontaneous
  Country: US (occurrence: US)
  Receive Date: 20210429
  Receipt Date: 20210517
  Transmission Date: 20210717
  Serious: Yes (Other)
  Sender: FDA-Public Use
  Company Number: US-PFIZER INC-2021365378

PATIENT
  Age: 73 Year
  Sex: Female

DRUGS (1)
  1. LYRICA [Suspect]
     Active Substance: PREGABALIN
     Indication: DIABETIC MONONEUROPATHY
     Dosage: 100 MG, 2X/DAY
     Route: 048

REACTIONS (2)
  - Pain [Unknown]
  - Cerebrovascular accident [Unknown]
